FAERS Safety Report 8234226-6 (Version None)
Quarter: 2012Q1

REPORT INFORMATION
  Report Type: 
  Country: None (occurrence: None)
  Receive Date: 20120326
  Receipt Date: 20120316
  Transmission Date: 20120608
  Serious: Yes (Hospitalization, Disabling, Other)
  Sender: FDA-Public Use
  Company Number: JP-CELGENEUS-087-21880-11112820

PATIENT
  Sex: Male

DRUGS (41)
  1. DEXAMETHASONE ACETATE [Suspect]
     Dosage: 24 MILLIGRAM
     Route: 048
     Dates: start: 20110703, end: 20110706
  2. DEXAMETHASONE ACETATE [Suspect]
     Dosage: 24 MILLIGRAM
     Route: 048
     Dates: start: 20110715, end: 20110718
  3. MAGMITT [Concomitant]
     Dosage: 1980 MILLIGRAM
     Route: 048
     Dates: start: 20110617, end: 20110818
  4. REVLIMID [Suspect]
     Indication: MULTIPLE MYELOMA
     Dosage: 15 MILLIGRAM
     Route: 048
     Dates: start: 20110519, end: 20110608
  5. DEXAMETHASONE ACETATE [Suspect]
     Dosage: 24 MILLIGRAM
     Route: 048
     Dates: start: 20110731, end: 20110803
  6. DEXAMETHASONE ACETATE [Suspect]
     Dosage: 24 MILLIGRAM
     Route: 048
     Dates: start: 20110812, end: 20110815
  7. NEUFAN [Concomitant]
     Indication: ILL-DEFINED DISORDER
     Dosage: 100 MILLIGRAM
     Route: 048
     Dates: start: 20090801, end: 20110615
  8. BACTRIM [Concomitant]
     Dosage: 1 TABLET
     Route: 048
     Dates: start: 20110617, end: 20110818
  9. PURSENNID [Concomitant]
     Indication: ILL-DEFINED DISORDER
     Dosage: 24 MILLIGRAM
     Route: 048
     Dates: start: 20110617, end: 20110818
  10. LAXOBERON [Concomitant]
     Indication: ILL-DEFINED DISORDER
     Dosage: 15 DROPS
     Route: 048
     Dates: start: 20110716, end: 20110818
  11. DEXAMETHASONE ACETATE [Suspect]
     Dosage: 24 MILLIGRAM
     Route: 048
     Dates: start: 20110604, end: 20110607
  12. BACTRIM [Concomitant]
     Indication: PROPHYLAXIS
     Dosage: 1 TABLET
     Route: 048
     Dates: start: 20090801, end: 20110615
  13. MOHRUS TAPE [Concomitant]
     Indication: ILL-DEFINED DISORDER
     Dosage: 20 MILLIGRAM
     Route: 062
     Dates: start: 20090801, end: 20110615
  14. GLYCERIN [Concomitant]
     Indication: ILL-DEFINED DISORDER
     Dosage: 60 MILLILITER
     Route: 054
     Dates: start: 20110804, end: 20110808
  15. PYRINAZIN [Concomitant]
     Indication: ILL-DEFINED DISORDER
     Dosage: .5 GRAM
     Route: 048
     Dates: start: 20110811, end: 20110818
  16. REVLIMID [Suspect]
     Dosage: 15 MILLIGRAM
     Route: 048
     Dates: start: 20110715, end: 20110804
  17. SODIUM BICARBONATE [Concomitant]
     Indication: PROPHYLAXIS
     Dosage: 40 MILLILITER
     Route: 041
     Dates: start: 20110512, end: 20110519
  18. LACTEC [Concomitant]
     Indication: ILL-DEFINED DISORDER
     Dosage: 500 MILLILITER
     Route: 041
     Dates: start: 20110710, end: 20110710
  19. REVLIMID [Suspect]
     Dosage: 15 MILLIGRAM
     Route: 048
     Dates: start: 20110617, end: 20110707
  20. DEXAMETHASONE ACETATE [Suspect]
     Dosage: 24 MILLIGRAM
     Route: 048
     Dates: start: 20110617, end: 20110620
  21. DEXAMETHASONE ACETATE [Suspect]
     Dosage: 24 MILLIGRAM
     Route: 048
     Dates: start: 20110723, end: 20110726
  22. SOLITA-T3 [Concomitant]
     Indication: ILL-DEFINED DISORDER
     Dosage: 1500 MILLILITER
     Route: 041
     Dates: start: 20110728, end: 20110804
  23. ASPIRIN [Concomitant]
     Indication: PROPHYLAXIS
     Dosage: 100 MILLIGRAM
     Route: 048
     Dates: start: 20110519, end: 20110615
  24. ASPIRIN [Concomitant]
     Dosage: 100 MILLIGRAM
     Route: 048
     Dates: start: 20110617, end: 20110818
  25. DEXAMETHASONE ACETATE [Suspect]
     Dosage: 24 MILLIGRAM
     Route: 048
     Dates: start: 20110527, end: 20110530
  26. LANSOPRAZOLE [Concomitant]
     Indication: PROPHYLAXIS
     Dosage: 15 MILLIGRAM
     Route: 048
     Dates: start: 20090801, end: 20110615
  27. NEUFAN [Concomitant]
     Indication: PROPHYLAXIS
     Dosage: 100 MILLIGRAM
     Route: 048
     Dates: start: 20110617, end: 20110818
  28. MAGMITT [Concomitant]
     Indication: ILL-DEFINED DISORDER
     Dosage: 1980 MILLIGRAM
     Route: 048
     Dates: start: 20090801, end: 20110615
  29. MOHRUS TAPE [Concomitant]
     Dosage: 20 MILLIGRAM
     Route: 062
     Dates: start: 20110617, end: 20110818
  30. SOLITA-T NO.1 [Concomitant]
     Indication: ILL-DEFINED DISORDER
     Dosage: 1000 MILLILITER
     Route: 041
     Dates: start: 20110512, end: 20110519
  31. LACTEC [Concomitant]
     Dosage: 1000 MILLILITER
     Route: 041
     Dates: start: 20110805, end: 20110817
  32. REVLIMID [Suspect]
     Dosage: 15 MILLIGRAM
     Route: 048
     Dates: start: 20110812, end: 20110817
  33. DEXAMETHASONE ACETATE [Suspect]
     Dosage: 24 MILLIGRAM
     Route: 048
     Dates: start: 20110625, end: 20110628
  34. LANSOPRAZOLE [Concomitant]
     Dosage: 15 MILLIGRAM
     Route: 048
     Dates: start: 20110617, end: 20110818
  35. ITRACONAZOLE [Concomitant]
     Dosage: 50 MILLIGRAM
     Route: 048
     Dates: start: 20110617, end: 20110818
  36. SOLITA-T NO.1 [Concomitant]
     Dosage: 1500 MILLILITER
     Route: 041
     Dates: start: 20110630, end: 20110704
  37. FENTOS TAPE [Concomitant]
     Indication: ILL-DEFINED DISORDER
     Dosage: 1 MILLIGRAM
     Route: 062
     Dates: start: 20110812, end: 20110821
  38. DEXAMETHASONE ACETATE [Suspect]
     Indication: MULTIPLE MYELOMA
     Dosage: 24 MILLIGRAM
     Route: 048
     Dates: start: 20110519, end: 20110522
  39. ITRACONAZOLE [Concomitant]
     Indication: PROPHYLAXIS
     Dosage: 50 MILLIGRAM
     Route: 048
     Dates: start: 20090801, end: 20110615
  40. SOLITA-T NO.1 [Concomitant]
     Dosage: 1500 MILLILITER
     Route: 041
     Dates: start: 20110710, end: 20110719
  41. EPOGIN [Concomitant]
     Indication: ILL-DEFINED DISORDER
     Dosage: 12000 IU (INTERNATIONAL UNIT)
     Route: 058
     Dates: start: 20110714, end: 20110714

REACTIONS (12)
  - GENERAL PHYSICAL HEALTH DETERIORATION [None]
  - HYPOXIA [None]
  - ATRIAL FIBRILLATION [None]
  - WEIGHT DECREASED [None]
  - THROMBOCYTOPENIA [None]
  - HEPATIC FUNCTION ABNORMAL [None]
  - ANAEMIA [None]
  - RESTLESSNESS [None]
  - MELAENA [None]
  - DEHYDRATION [None]
  - DIABETES MELLITUS [None]
  - DIARRHOEA [None]
